FAERS Safety Report 17293434 (Version 1)
Quarter: 2020Q1

REPORT INFORMATION
  Report Type: Spontaneous
  Country: JP (occurrence: JP)
  Receive Date: 20200121
  Receipt Date: 20200121
  Transmission Date: 20200409
  Serious: Yes (Other)
  Sender: FDA-Public Use
  Company Number: JP-STRIDES ARCOLAB LIMITED-2020SP000564

PATIENT
  Age: 11 Month
  Sex: Female

DRUGS (4)
  1. VANCOMYCIN [Suspect]
     Active Substance: VANCOMYCIN
     Dosage: 150 MILLIGRAM/KILOGRAM PER DOSE
     Route: 065
  2. CISPLATIN. [Concomitant]
     Active Substance: CISPLATIN
     Indication: CHEMOTHERAPY
     Dosage: UNK
     Route: 065
  3. CISPLATIN. [Concomitant]
     Active Substance: CISPLATIN
     Indication: RETINOBLASTOMA
  4. VANCOMYCIN [Suspect]
     Active Substance: VANCOMYCIN
     Indication: BACILLUS BACTERAEMIA
     Dosage: UNK
     Route: 065

REACTIONS (5)
  - Renal impairment [Recovered/Resolved]
  - Nephropathy toxic [Unknown]
  - Acute kidney injury [Recovered/Resolved]
  - Accidental overdose [Unknown]
  - Incorrect dose administered [Unknown]
